FAERS Safety Report 5394551-3 (Version None)
Quarter: 2007Q3

REPORT INFORMATION
  Report Type: 
  Country: None (occurrence: None)
  Receive Date: 20070723
  Receipt Date: 20070718
  Transmission Date: 20080115
  Serious: Yes (Hospitalization)
  Sender: FDA-Public Use
  Company Number: JP-BOEHRINGER INGELHEIM PHARMACEUTICALS, INC.-2007-BP-17630NB

PATIENT
  Age: 70 Year
  Sex: Male

DRUGS (2)
  1. SPIRIVA [Suspect]
     Indication: CHRONIC OBSTRUCTIVE PULMONARY DISEASE
     Dates: start: 20070503
  2. ALLOPURINOL [Suspect]

REACTIONS (2)
  - EOSINOPHILIC PNEUMONIA [None]
  - INTERSTITIAL LUNG DISEASE [None]
